FAERS Safety Report 21631370 (Version 1)
Quarter: 2022Q4

REPORT INFORMATION
  Report Type: Spontaneous
  Country: HR (occurrence: HR)
  Receive Date: 20221123
  Receipt Date: 20221123
  Transmission Date: 20230113
  Serious: Yes (Death, Other)
  Sender: FDA-Public Use
  Company Number: HR-009507513-2211HRV005133

PATIENT
  Sex: Male

DRUGS (1)
  1. RECARBRIO [Suspect]
     Active Substance: CILASTATIN\IMIPENEM ANHYDROUS\RELEBACTAM ANHYDROUS
     Dosage: UNK

REACTIONS (3)
  - Death [Fatal]
  - Drug ineffective [Unknown]
  - Blood potassium decreased [Unknown]
